FAERS Safety Report 9397215 (Version 1)
Quarter: 2013Q3

REPORT INFORMATION
  Report Type: Spontaneous
  Country: US (occurrence: None)
  Receive Date: 20130710
  Receipt Date: 20130710
  Transmission Date: 20140515
  Serious: No
  Sender: FDA-Public Use
  Company Number: None

PATIENT
  Age: 25 Year
  Sex: Female

DRUGS (1)
  1. XOLAIR [Suspect]
     Dosage: MIX EACH VIAL WITH 1.4ML STERILE WATER AND INJECT 112.5MG (0.9ML) AT 2 SUBQ SITES EVERY 2 WEEKS *TOTAL DOSE=225MG*
     Route: 058
     Dates: start: 20130606

REACTIONS (3)
  - Speech disorder [None]
  - Speech disorder [None]
  - Communication disorder [None]
